FAERS Safety Report 4622797-8 (Version None)
Quarter: 2005Q1

REPORT INFORMATION
  Report Type: 
  Country: None (occurrence: None)
  Receive Date: 20050328
  Receipt Date: 20050328
  Transmission Date: 20050727
  Serious: Yes (Hospitalization)
  Sender: FDA-Public Use
  Company Number: None

PATIENT
  Age: 64 Year
  Sex: Male

DRUGS (11)
  1. DIGOXIN [Suspect]
     Indication: AORTIC VALVE REPLACEMENT
     Dosage: 0.25MG/D PO
     Route: 048
     Dates: start: 20040703, end: 20050115
  2. AMIODARONE [Suspect]
     Indication: AORTIC VALVE REPLACEMENT
     Dosage: 200MG PO BID
     Route: 048
     Dates: start: 20040703, end: 20050115
  3. AMIODARONE HCL [Concomitant]
  4. ASPIRIN [Concomitant]
  5. ATENOLOL [Concomitant]
  6. LANOXIN [Concomitant]
  7. DOCUSATE NA [Concomitant]
  8. FOSINOPRIL NA [Concomitant]
  9. FUROSEMIDE [Concomitant]
  10. HYDROCHLOROTHIAZIDE [Concomitant]
  11. SIMVASTATIN [Concomitant]

REACTIONS (6)
  - BLOOD CREATININE INCREASED [None]
  - BRADYCARDIA [None]
  - CARDIOACTIVE DRUG LEVEL ABOVE THERAPEUTIC [None]
  - DEHYDRATION [None]
  - NAUSEA [None]
  - VOMITING [None]
